FAERS Safety Report 8140688-5 (Version None)
Quarter: 2012Q1

REPORT INFORMATION
  Report Type: 
  Country: None (occurrence: None)
  Receive Date: 20120216
  Receipt Date: 20120208
  Transmission Date: 20120608
  Serious: Yes (Hospitalization, Other)
  Sender: FDA-Public Use
  Company Number: US-US-EMD SERONO, INC.-7039021

PATIENT
  Sex: Female

DRUGS (3)
  1. REBIF [Suspect]
     Route: 058
  2. UNSPECIFIED MEDICATIONS [Concomitant]
  3. REBIF [Suspect]
     Indication: MULTIPLE SCLEROSIS
     Route: 058
     Dates: start: 20071221

REACTIONS (9)
  - PERSONALITY DISORDER [None]
  - POST PROCEDURAL INFECTION [None]
  - SELF INJURIOUS BEHAVIOUR [None]
  - AFFECTIVE DISORDER [None]
  - CENTRAL NERVOUS SYSTEM LESION [None]
  - DIZZINESS [None]
  - BIPOLAR DISORDER [None]
  - MUSCLE TWITCHING [None]
  - INJECTION SITE ERYTHEMA [None]
